FAERS Safety Report 11979721 (Version 2)
Quarter: 2016Q1

REPORT INFORMATION
  Report Type: Report from Study
  Country: CA (occurrence: CA)
  Receive Date: 20160129
  Receipt Date: 20160210
  Transmission Date: 20160526
  Serious: Yes (Hospitalization, Other)
  Sender: FDA-Public Use
  Company Number: CA-GILEAD-2015-0188875

PATIENT
  Age: 60 Year
  Sex: Female

DRUGS (5)
  1. IDELALISIB [Suspect]
     Active Substance: IDELALISIB
     Indication: CHRONIC LYMPHOCYTIC LEUKAEMIA
     Dosage: 150 MG, BID
     Route: 048
     Dates: start: 201511, end: 20151227
  2. FOLIC ACID. [Concomitant]
     Active Substance: FOLIC ACID
     Dosage: UNK
     Dates: start: 20151028
  3. CEFUROXIN [Concomitant]
     Active Substance: CEFUROXIME
     Dosage: UNK
     Dates: start: 20151127
  4. IRBESARTAN. [Concomitant]
     Active Substance: IRBESARTAN
  5. GLICLAZIDE [Concomitant]
     Active Substance: GLICLAZIDE
     Dosage: UNK
     Dates: start: 20151124

REACTIONS (7)
  - Malaise [Unknown]
  - Viral infection [Unknown]
  - Pyrexia [Unknown]
  - Nausea [Unknown]
  - Vomiting [Recovered/Resolved]
  - Pancytopenia [Unknown]
  - Chills [Unknown]

NARRATIVE: CASE EVENT DATE: 20151213
